FAERS Safety Report 5621653-6 (Version None)
Quarter: 2008Q1

REPORT INFORMATION
  Report Type: 
  Country: None (occurrence: None)
  Receive Date: 20080206
  Receipt Date: 20080122
  Transmission Date: 20080703
  Serious: Yes (Other)
  Sender: FDA-Public Use
  Company Number: 07-002412

PATIENT
  Age: 34 Year
  Sex: Female
  Weight: 112 kg

DRUGS (3)
  1. FEMCON FE(NORETHINDRONE, ETHINYL ESTRADIOL) CHEWABLE , 0.4/35MCG [Suspect]
     Indication: CONTRACEPTION
     Dosage: 0.4/35MCG, QD, ORAL
     Route: 048
     Dates: start: 20071122, end: 20071210
  2. FEMCON FE(NORETHINDRONE, ETHINYL ESTRADIOL) CHEWABLE , 0.4/35MCG [Suspect]
     Indication: MENORRHAGIA
     Dosage: 0.4/35MCG, QD, ORAL
     Route: 048
     Dates: start: 20071122, end: 20071210
  3. LEVOXYL (LEBOTHYROXINE SODIUM) TABLET [Concomitant]

REACTIONS (8)
  - ARACHNOID CYST [None]
  - BENIGN INTRACRANIAL HYPERTENSION [None]
  - BLOOD THYROID STIMULATING HORMONE ABNORMAL [None]
  - EYELID BLEEDING [None]
  - HEADACHE [None]
  - OPTIC DISC DISORDER [None]
  - PAPILLOEDEMA [None]
  - VISION BLURRED [None]
